FAERS Safety Report 8306415-3 (Version None)
Quarter: 2012Q2

REPORT INFORMATION
  Report Type: 
  Country: None (occurrence: None)
  Receive Date: 20120423
  Receipt Date: 20120409
  Transmission Date: 20120825
  Serious: Yes (Death, Hospitalization, Other)
  Sender: FDA-Public Use
  Company Number: US-MYLANLABS-2009AL001060

PATIENT
  Sex: Female
  Weight: 78.93 kg

DRUGS (52)
  1. FUROSEMIDE [Concomitant]
  2. PROTONIX [Concomitant]
  3. PROVERA [Concomitant]
  4. REQUIP [Concomitant]
  5. GLYQUIN /06169701/ [Concomitant]
     Route: 061
  6. ALDACTONE [Concomitant]
  7. AVELOX [Concomitant]
  8. PROCARDIA /00340701/ [Concomitant]
  9. TAMIFLU [Concomitant]
  10. TERAZOL /00871201/ [Concomitant]
  11. TYLENOL (CAPLET) [Concomitant]
  12. BENTYL [Concomitant]
  13. CARDURA [Concomitant]
  14. LOSARTAN [Concomitant]
  15. MIDRIN [Concomitant]
  16. PREVACID [Concomitant]
  17. VALTREX [Concomitant]
  18. VICON FORTE [Concomitant]
  19. ADVAIR DISKUS 100/50 [Concomitant]
  20. CAPTOPRIL [Concomitant]
  21. CLARITIN /00917501/ [Concomitant]
  22. FLONASE [Concomitant]
  23. SYNTHROID [Concomitant]
  24. KEFLEX [Concomitant]
  25. HEMOCYTE PLUS [Concomitant]
  26. IBUPROFEN [Concomitant]
  27. PHENERGAN HCL [Concomitant]
  28. PLENDIL [Concomitant]
  29. PREDNISONE TAB [Concomitant]
  30. ALLEGRA-D 12 HOUR [Concomitant]
  31. BIAXIN [Concomitant]
  32. BUMEX [Concomitant]
  33. POTASSIUM CHLORIDE [Concomitant]
  34. NYSTATIN [Concomitant]
  35. PLETAL [Concomitant]
  36. SUPRAX [Concomitant]
  37. ZITHROMAX [Concomitant]
  38. ASPIRIN [Concomitant]
  39. ATIVAN [Concomitant]
  40. BACTRIM [Concomitant]
  41. BACTROBAN [Concomitant]
  42. OMNICEF /00497602/ [Concomitant]
  43. REMODULIN [Concomitant]
  44. GUAIFENESIN [Concomitant]
  45. SINGULAIR [Concomitant]
  46. TRACLEER [Concomitant]
  47. ZYRTEC [Concomitant]
  48. DIGOXIN [Suspect]
     Route: 048
  49. LEVAQUIN [Concomitant]
  50. SPIRIVA [Concomitant]
  51. VIAGRA [Concomitant]
  52. WESTCORT [Concomitant]

REACTIONS (107)
  - DEATH [None]
  - PLEURAL EFFUSION [None]
  - SYSTEMIC SCLEROSIS [None]
  - CELLULITIS [None]
  - CONNECTIVE TISSUE DISORDER [None]
  - DIZZINESS [None]
  - GASTRITIS [None]
  - HYPERTENSION [None]
  - LUNG DISORDER [None]
  - OXYGEN CONSUMPTION [None]
  - PRODUCTIVE COUGH [None]
  - EMOTIONAL DISTRESS [None]
  - PNEUMONITIS [None]
  - AFFECT LABILITY [None]
  - ANAEMIA [None]
  - BACK PAIN [None]
  - CARDIAC MURMUR [None]
  - CREPITATIONS [None]
  - DECREASED ACTIVITY [None]
  - HEADACHE [None]
  - RHONCHI [None]
  - SKIN HYPERPIGMENTATION [None]
  - SKIN HYPOPIGMENTATION [None]
  - STAPHYLOCOCCAL SKIN INFECTION [None]
  - SUBCUTANEOUS NODULE [None]
  - SOCIAL AVOIDANT BEHAVIOUR [None]
  - MELAENA [None]
  - PERICARDITIS RHEUMATIC [None]
  - BLOOD CULTURE POSITIVE [None]
  - COMPUTERISED TOMOGRAM ABNORMAL [None]
  - CYANOSIS [None]
  - GASTROOESOPHAGEAL REFLUX DISEASE [None]
  - HYPOTHYROIDISM [None]
  - LABORATORY TEST ABNORMAL [None]
  - LIVER FUNCTION TEST ABNORMAL [None]
  - LYMPHADENOPATHY [None]
  - PAIN IN EXTREMITY [None]
  - TRIGEMINAL NEURALGIA [None]
  - ILL-DEFINED DISORDER [None]
  - CARDIAC VALVE DISEASE [None]
  - PULMONARY ARTERIAL HYPERTENSION [None]
  - PULMONARY HYPERTENSION [None]
  - SCLERODERMA [None]
  - ALLEN'S TEST [None]
  - CARDIOMEGALY [None]
  - DYSPEPSIA [None]
  - EMPHYSEMA [None]
  - HEPATIC STEATOSIS [None]
  - RENAL FAILURE [None]
  - AZOTAEMIA [None]
  - BLOOD THYROID STIMULATING HORMONE INCREASED [None]
  - BUNION [None]
  - CHEST X-RAY ABNORMAL [None]
  - COUGH [None]
  - DEPRESSED MOOD [None]
  - ECHOCARDIOGRAM ABNORMAL [None]
  - HERPES SIMPLEX [None]
  - INFLAMMATION [None]
  - JUGULAR VEIN DISTENSION [None]
  - OBESITY [None]
  - SINUS CONGESTION [None]
  - SKIN LESION [None]
  - TENDERNESS [None]
  - WEIGHT INCREASED [None]
  - ECONOMIC PROBLEM [None]
  - GASTROINTESTINAL HAEMORRHAGE [None]
  - PERICARDITIS [None]
  - ABDOMINAL DISTENSION [None]
  - ASTHENIA [None]
  - BREATH SOUNDS ABNORMAL [None]
  - CENTRAL VENOUS CATHETERISATION [None]
  - DYSPNOEA EXERTIONAL [None]
  - ERYTHEMA [None]
  - FIBROSIS [None]
  - HYPOTENSION [None]
  - MENORRHAGIA [None]
  - OEDEMA [None]
  - VOMITING [None]
  - DYSPNOEA [None]
  - ASCITES [None]
  - CARDIAC FAILURE CONGESTIVE [None]
  - SCLERODACTYLIA [None]
  - SHOCK [None]
  - ANXIETY [None]
  - ATROPHY [None]
  - HYPOKALAEMIA [None]
  - JOINT EFFUSION [None]
  - LOSS OF EMPLOYMENT [None]
  - MALAISE [None]
  - MUSCLE SPASMS [None]
  - NAUSEA [None]
  - RIGHT VENTRICULAR FAILURE [None]
  - SKIN ULCER [None]
  - INJURY [None]
  - PAIN [None]
  - PERICARDIAL EFFUSION [None]
  - VENOUS THROMBOSIS [None]
  - CALCINOSIS [None]
  - CHILLS [None]
  - CONDITION AGGRAVATED [None]
  - INTERVERTEBRAL DISC DEGENERATION [None]
  - UPPER-AIRWAY COUGH SYNDROME [None]
  - PYREXIA [None]
  - RAYNAUD'S PHENOMENON [None]
  - RIGHT VENTRICULAR HYPERTROPHY [None]
  - SKIN TIGHTNESS [None]
  - WOUND DRAINAGE [None]
